FAERS Safety Report 9388371 (Version 1)
Quarter: 2013Q3

REPORT INFORMATION
  Report Type: Spontaneous
  Country: US (occurrence: None)
  Receive Date: 20130703
  Receipt Date: 20130703
  Transmission Date: 20140515
  Serious: Yes (Death, Hospitalization)
  Sender: FDA-Public Use
  Company Number: 148940

PATIENT
  Age: 64 Year
  Sex: Female
  Weight: 56 kg

DRUGS (2)
  1. CYTARABINE [Suspect]
     Indication: ACUTE MYELOID LEUKAEMIA
     Dosage: R 24 HOURS ON DAYS
     Route: 042
     Dates: start: 20130531
  2. CYTARABINE [Suspect]
     Dosage: R 24 HOURS ON DAYS
     Route: 042
     Dates: start: 20130531

REACTIONS (4)
  - Lung infection [None]
  - Febrile neutropenia [None]
  - Multi-organ failure [None]
  - Sepsis [None]
